FAERS Safety Report 9305066 (Version 1)
Quarter: 2013Q2

REPORT INFORMATION
  Report Type: Spontaneous
  Country: US (occurrence: None)
  Receive Date: 20130521
  Receipt Date: 20130521
  Transmission Date: 20140414
  Serious: Yes (Hospitalization, Other)
  Sender: FDA-Public Use
  Company Number: JPI-P-031708

PATIENT
  Age: 59 Year
  Sex: Female
  Weight: 92.53 kg

DRUGS (5)
  1. XYREM (500 MILLIGRAM/ MILLILITERS, SOLUTION) (SODIUM OXYBATE) [Suspect]
     Indication: FIBROMYALGIA
     Dosage: 3 GM(1.5 GM,2 IN 1 D)
     Route: 048
     Dates: start: 20040713
  2. XYREM (500 MILLIGRAM/ MILLILITERS, SOLUTION) (SODIUM OXYBATE) [Suspect]
     Indication: CATAPLEXY
     Dosage: 3 GM(1.5 GM,2 IN 1 D)
     Route: 048
     Dates: start: 20040713
  3. CYCLOBENZAPRINE HYDROCHLORIDE [Concomitant]
  4. FLUOXETINE HYDROCHLORIDE [Concomitant]
  5. MODAFINIL [Concomitant]

REACTIONS (3)
  - Supraventricular tachycardia [None]
  - Knee arthroplasty [None]
  - Procedural pain [None]
